FAERS Safety Report 7610314-X (Version None)
Quarter: 2011Q3

REPORT INFORMATION
  Report Type: 
  Country: None (occurrence: None)
  Receive Date: 20110706
  Receipt Date: 20110623
  Transmission Date: 20111222
  Serious: Yes (Disabling)
  Sender: FDA-Public Use
  Company Number: GB-1186914

PATIENT
  Age: 87 Year
  Sex: Female
  Weight: 59 kg

DRUGS (2)
  1. INDAPAMIDE [Concomitant]
  2. CILOXAN [Suspect]

REACTIONS (1)
  - TENDONITIS [None]
